APPROVED DRUG PRODUCT: NATACYN
Active Ingredient: NATAMYCIN
Strength: 5%
Dosage Form/Route: SUSPENSION;OPHTHALMIC
Application: N050514 | Product #001
Applicant: HARROW EYE LLC
Approved: Approved Prior to Jan 1, 1982 | RLD: Yes | RS: Yes | Type: RX